FAERS Safety Report 9853844 (Version 3)
Quarter: 2014Q1

REPORT INFORMATION
  Report Type: Spontaneous
  Country: GB (occurrence: GB)
  Receive Date: 20140129
  Receipt Date: 20140205
  Transmission Date: 20141002
  Serious: Yes (Other)
  Sender: FDA-Public Use
  Company Number: GB-009507513-1312GBR005973

PATIENT
  Sex: Female

DRUGS (4)
  1. IMPLANON [Suspect]
     Indication: CONTRACEPTION
     Dosage: UNK
     Route: 058
     Dates: start: 200909
  2. BUSCOPAN [Concomitant]
  3. ACETAMINOPHEN [Concomitant]
  4. SIMPONI [Concomitant]

REACTIONS (8)
  - Cholecystectomy [Unknown]
  - Hyperhidrosis [Unknown]
  - Implant site pain [Unknown]
  - Skin disorder [Unknown]
  - Learning disorder [Unknown]
  - Hypercholesterolaemia [Unknown]
  - Irritable bowel syndrome [Unknown]
  - Incorrect drug administration duration [Unknown]
